FAERS Safety Report 5395240-1 (Version None)
Quarter: 2007Q3

REPORT INFORMATION
  Report Type: 
  Country: None (occurrence: None)
  Receive Date: 20070713
  Receipt Date: 20070418
  Transmission Date: 20080115
  Serious: Yes (Hospitalization, Disabling)
  Sender: FDA-Public Use
  Company Number: US-JNJFOC-20061101781

PATIENT
  Age: 31 Year
  Sex: Female
  Weight: 65.7716 kg

DRUGS (2)
  1. ORTHO EVRA [Suspect]
     Indication: DYSMENORRHOEA
     Dosage: TRANSDERMAL
     Route: 062
     Dates: start: 20051001
  2. ORTHO EVRA [Suspect]
     Indication: MENORRHAGIA
     Dosage: TRANSDERMAL
     Route: 062
     Dates: start: 20051001

REACTIONS (1)
  - CEREBROVASCULAR ACCIDENT [None]
